FAERS Safety Report 26088456 (Version 2)
Quarter: 2025Q4

REPORT INFORMATION
  Report Type: Report from Study
  Country: US (occurrence: US)
  Receive Date: 20251125
  Receipt Date: 20251205
  Transmission Date: 20260118
  Serious: Yes (Hospitalization)
  Sender: LUNDBECK
  Company Number: US-LUNDBECK-DKLU4022134

PATIENT
  Sex: Female
  Weight: 2.2 kg

DRUGS (1)
  1. VYEPTI [Suspect]
     Active Substance: EPTINEZUMAB-JJMR
     Indication: Foetal exposure during pregnancy
     Route: 064

REACTIONS (1)
  - Premature baby [Recovering/Resolving]

NARRATIVE: CASE EVENT DATE: 20251114
